FAERS Safety Report 23225542 (Version 2)
Quarter: 2023Q4

REPORT INFORMATION
  Report Type: Report from Study
  Country: US (occurrence: US)
  Receive Date: 20231124
  Receipt Date: 20231130
  Transmission Date: 20240110
  Serious: No
  Sender: FDA-Public Use
  Company Number: US-ALXN-A202213569

PATIENT
  Age: 3 Year
  Sex: Male

DRUGS (1)
  1. STRENSIQ [Suspect]
     Active Substance: ASFOTASE ALFA
     Indication: Hypophosphatasia
     Dosage: 36 MG, TIW
     Route: 058

REACTIONS (18)
  - Pyrexia [Recovered/Resolved]
  - Erythema [Recovered/Resolved]
  - Inflammation [Recovered/Resolved]
  - Balance disorder [Recovering/Resolving]
  - Pain [Recovered/Resolved]
  - Growth accelerated [Recovering/Resolving]
  - Mood altered [Recovering/Resolving]
  - Seasonal allergy [Not Recovered/Not Resolved]
  - Malaise [Recovered/Resolved]
  - Nightmare [Recovering/Resolving]
  - Hand-foot-and-mouth disease [Unknown]
  - Contusion [Recovered/Resolved]
  - Injection site bruising [Recovering/Resolving]
  - Injection site pain [Unknown]
  - Injection site erythema [Unknown]
  - Injection site swelling [Not Recovered/Not Resolved]
  - Injection site reaction [Unknown]
  - Injection site pruritus [Recovering/Resolving]

NARRATIVE: CASE EVENT DATE: 20221001
